FAERS Safety Report 9526920 (Version 1)
Quarter: 2013Q3

REPORT INFORMATION
  Report Type: Spontaneous
  Country: JP (occurrence: JP)
  Receive Date: 20130916
  Receipt Date: 20130916
  Transmission Date: 20140515
  Serious: Yes (Other)
  Sender: FDA-Public Use
  Company Number: JP-ROCHE-1273865

PATIENT
  Age: 52 Year
  Sex: Male

DRUGS (11)
  1. AVASTIN [Suspect]
     Indication: RECTAL CANCER METASTATIC
     Route: 041
     Dates: start: 20120828, end: 20130402
  2. AVASTIN [Suspect]
     Indication: RECTAL CANCER METASTATIC
     Dosage: DOSAGE IS UNCERTAIN.
     Route: 041
     Dates: start: 20130628, end: 20130719
  3. XELODA [Suspect]
     Indication: RECTAL CANCER METASTATIC
     Route: 048
     Dates: start: 20120828, end: 20130416
  4. XELODA [Suspect]
     Indication: RECTAL CANCER METASTATIC
     Route: 048
     Dates: start: 20130628, end: 20130802
  5. ELPLAT [Concomitant]
     Indication: RECTAL CANCER METASTATIC
     Route: 041
     Dates: start: 20120828, end: 20130402
  6. LOXONIN [Concomitant]
     Route: 048
     Dates: start: 20120828
  7. PARIET [Concomitant]
     Route: 048
     Dates: start: 20120828
  8. NAUZELIN [Concomitant]
     Route: 048
     Dates: start: 20120828
  9. OXYCONTIN [Concomitant]
     Route: 048
     Dates: start: 20120828
  10. LYRICA [Concomitant]
     Route: 048
     Dates: start: 20120828
  11. GOSHAJINKIGAN [Concomitant]
     Route: 048
     Dates: start: 20121127

REACTIONS (1)
  - Rectal perforation [Recovered/Resolved]
